FAERS Safety Report 5794657-0 (Version None)
Quarter: 2008Q2

REPORT INFORMATION
  Report Type: 
  Country: None (occurrence: None)
  Receive Date: 20080627
  Receipt Date: 20080627
  Transmission Date: 20081010
  Serious: Yes (Other)
  Sender: FDA-Public Use
  Company Number: None

PATIENT
  Age: 55 Year
  Sex: Female
  Weight: 90.7194 kg

DRUGS (4)
  1. DESOXYN [Suspect]
     Indication: CATAPLEXY
     Dosage: 25 TABLETS PER DAY IN DIVIDED DOSE, PRN
     Dates: start: 20070201
  2. DESOXYN [Suspect]
     Indication: NARCOLEPSY
     Dosage: 25 TABLETS PER DAY IN DIVIDED DOSE, PRN
     Dates: start: 20070201
  3. ALPRAZOLAM [Concomitant]
  4. RANTIDINE [Concomitant]

REACTIONS (1)
  - OFF LABEL USE [None]
